FAERS Safety Report 9216133 (Version 4)
Quarter: 2013Q2

REPORT INFORMATION
  Report Type: Spontaneous
  Country: US (occurrence: US)
  Receive Date: 20130408
  Receipt Date: 20130524
  Transmission Date: 20140414
  Serious: Yes (Death, Life-Threatening, Hospitalization, Disabling, Other)
  Sender: FDA-Public Use
  Company Number: US-009507513-1304USA003036

PATIENT
  Sex: Male
  Weight: 70.75 kg

DRUGS (5)
  1. INTEGRILIN [Suspect]
     Indication: ACUTE MYOCARDIAL INFARCTION
     Dosage: UNK
     Route: 042
     Dates: start: 2011, end: 20121208
  2. ASPIRIN [Concomitant]
     Dosage: 325 MG TOTAL DAILY DOSE
     Route: 048
  3. PLAVIX [Concomitant]
     Dosage: 800 MG TOTAL DAILY DOSE
     Route: 048
  4. VERSED [Concomitant]
     Route: 042
  5. FENTANYL [Concomitant]
     Route: 042

REACTIONS (2)
  - Cardiogenic shock [Fatal]
  - Pulmonary alveolar haemorrhage [Fatal]
